FAERS Safety Report 4428270-4 (Version None)
Quarter: 2004Q3

REPORT INFORMATION
  Report Type: 
  Country: None (occurrence: None)
  Receive Date: 20040813
  Receipt Date: 20040809
  Transmission Date: 20050211
  Serious: Yes (Hospitalization)
  Sender: FDA-Public Use
  Company Number: 200412420GDS

PATIENT
  Age: 68 Year
  Sex: Male

DRUGS (1)
  1. ASPIRIN [Suspect]
     Indication: HEADACHE
     Dosage: 500 MG, TOTAL DAILY, ORAL
     Route: 048
     Dates: start: 20040301, end: 20040519

REACTIONS (1)
  - CEREBELLAR HAEMORRHAGE [None]
